FAERS Safety Report 5130412-2 (Version None)
Quarter: 2006Q4

REPORT INFORMATION
  Report Type: 
  Country: None (occurrence: None)
  Receive Date: 20061017
  Receipt Date: 20061017
  Transmission Date: 20070319
  Serious: Yes (Hospitalization)
  Sender: FDA-Public Use
  Company Number: None

PATIENT
  Age: 40 Year
  Sex: Female

DRUGS (15)
  1. OXACILLIN [Suspect]
     Indication: ENDOCARDITIS
     Dates: start: 20060505
  2. DULOXETINE [Suspect]
     Dates: start: 20060502
  3. LIODERM [Concomitant]
  4. MIRALAX [Concomitant]
  5. MORPHINE [Concomitant]
  6. ZOLOFT [Concomitant]
  7. ALBUTEROL [Concomitant]
  8. PREDNISONE TAB [Concomitant]
  9. REMERON [Concomitant]
  10. SENNA [Concomitant]
  11. DOCUSATE [Concomitant]
  12. BISACODYL [Concomitant]
  13. IRON [Concomitant]
  14. NEURONTIN [Concomitant]
  15. M.V.I. [Concomitant]

REACTIONS (2)
  - ALANINE AMINOTRANSFERASE INCREASED [None]
  - ASPARTATE AMINOTRANSFERASE INCREASED [None]
